FAERS Safety Report 12674364 (Version 1)
Quarter: 2016Q3

REPORT INFORMATION
  Report Type: Spontaneous
  Country: US (occurrence: US)
  Receive Date: 20160822
  Receipt Date: 20160822
  Transmission Date: 20161109
  Serious: No
  Sender: FDA-Public Use
  Company Number: US-BEH-2015055999

PATIENT
  Age: 69 Year
  Sex: Female
  Weight: 52.16 kg

DRUGS (20)
  1. ACETAMINOPHEN. [Concomitant]
     Active Substance: ACETAMINOPHEN
  2. VALSARTAN. [Concomitant]
     Active Substance: VALSARTAN
  3. ZEMAIRA [Suspect]
     Active Substance: .ALPHA.1-PROTEINASE INHIBITOR HUMAN
     Indication: ALPHA-1 ANTI-TRYPSIN DEFICIENCY
     Route: 042
     Dates: start: 20151030
  4. COQ [Concomitant]
  5. VITAMIN C [Concomitant]
     Active Substance: ASCORBIC ACID
  6. ATORVASTATIN [Concomitant]
     Active Substance: ATORVASTATIN
  7. MELATONIN [Concomitant]
     Active Substance: MELATONIN
  8. LIDOCAINE. [Concomitant]
     Active Substance: LIDOCAINE
  9. EPIPEN [Concomitant]
     Active Substance: EPINEPHRINE
  10. GINKGO [Concomitant]
     Active Substance: GINKGO
  11. VITAMIN B [Concomitant]
     Active Substance: VITAMIN B
  12. AMLODIPINE [Concomitant]
     Active Substance: AMLODIPINE BESYLATE
  13. SYMBICORT [Concomitant]
     Active Substance: BUDESONIDE\FORMOTEROL FUMARATE DIHYDRATE
  14. VITAMIN D [Concomitant]
     Active Substance: CHOLECALCIFEROL
  15. SODIUM CHLORIDE. [Concomitant]
     Active Substance: SODIUM CHLORIDE
  16. VAGIFEN [Concomitant]
  17. SPIRIVA [Concomitant]
     Active Substance: TIOTROPIUM BROMIDE MONOHYDRATE
  18. DIPHENHYDRAMINE. [Concomitant]
     Active Substance: DIPHENHYDRAMINE
  19. VITAMIN B COMPLEX [Concomitant]
     Active Substance: CYANOCOBALAMIN\DEXPANTHENOL\NIACINAMIDE\PYRIDOXINE HYDROCHLORIDE\RIBOFLAVIN 5^-PHOSPHATE SODIUM\THIAMINE HYDROCHLORIDE\VITAMIN B COMPLEX
  20. POTASSIUM [Concomitant]
     Active Substance: POTASSIUM

REACTIONS (1)
  - Upper-airway cough syndrome [Unknown]

NARRATIVE: CASE EVENT DATE: 20151030
